FAERS Safety Report 9574865 (Version 1)
Quarter: 2013Q4

REPORT INFORMATION
  Report Type: Spontaneous
  Country: US (occurrence: US)
  Receive Date: 20131001
  Receipt Date: 20131001
  Transmission Date: 20140711
  Serious: Yes (Hospitalization)
  Sender: FDA-Public Use
  Company Number: US-PFIZER INC-2013279233

PATIENT
  Age: 50 Year
  Sex: Male
  Weight: 98.87 kg

DRUGS (14)
  1. LIPITOR [Suspect]
     Indication: BLOOD CHOLESTEROL INCREASED
     Dosage: 40 MG, 1X/DAY
     Route: 048
  2. ZOLOFT [Suspect]
     Indication: DEPRESSION
     Dosage: 100 MG, 1X/DAY
     Route: 048
  3. ASPIRIN [Concomitant]
     Dosage: 81 MG, 1X/DAY
  4. CLOPIDOGREL [Concomitant]
     Dosage: 75 MG, 1X/DAY
  5. FUROSEMIDE [Concomitant]
     Dosage: 40 MG, 1X/DAY
  6. GLYBURIDE [Concomitant]
     Dosage: 15 MG (TWO TABLETS OF 5 MG IN THE MORNING AND ONE TABLET OF 5 MG AT NIGHT), 1X/DAY
  7. LISINOPRIL [Concomitant]
     Dosage: 10 MG, UNK
  8. TYLENOL [Concomitant]
     Dosage: UNK, 4X/DAY
  9. METOPROLOL [Concomitant]
     Dosage: 50 MG, 2X/DAY
  10. FISH OIL [Concomitant]
     Dosage: 2 DF, 2X/DAY
  11. KLOR CON M 20 [Concomitant]
     Dosage: UNK, 1X/DAY
  12. HYDROCHLOROTHIAZIDE WITH TRIAMTERENE [Concomitant]
     Dosage: 37.5/25 MG, 1X/DAY
  13. ISOSORBIDE MONONITRATE ER [Concomitant]
     Dosage: 30 MG, 1X/DAY
  14. SOMA [Concomitant]
     Dosage: 350 MG, 4X/DAY

REACTIONS (5)
  - Coronary artery occlusion [Unknown]
  - Cardiac disorder [Unknown]
  - Blood triglycerides increased [Unknown]
  - Blood cholesterol increased [Unknown]
  - Drug ineffective [Unknown]
